FAERS Safety Report 7772647-6 (Version None)
Quarter: 2011Q3

REPORT INFORMATION
  Report Type: 
  Country: None (occurrence: None)
  Receive Date: 20110922
  Receipt Date: 20110719
  Transmission Date: 20111222
  Serious: No
  Sender: FDA-Public Use
  Company Number: US-ASTRAZENECA-2009UW00889

PATIENT
  Age: 49 Year
  Sex: Female
  Weight: 65.8 kg

DRUGS (6)
  1. SEROQUEL [Suspect]
     Route: 048
     Dates: start: 20100801
  2. IBUPROFEN [Concomitant]
     Indication: HEADACHE
  3. SEROQUEL [Suspect]
     Indication: BIPOLAR DISORDER
     Route: 048
     Dates: start: 20040101, end: 20100801
  4. ADDERALL 5 [Concomitant]
  5. VISTARIL [Concomitant]
  6. SEROQUEL [Suspect]
     Route: 048

REACTIONS (6)
  - INCORRECT DOSE ADMINISTERED [None]
  - MIGRAINE [None]
  - MEMORY IMPAIRMENT [None]
  - OBSESSIVE THOUGHTS [None]
  - DRUG DOSE OMISSION [None]
  - DRUG WITHDRAWAL SYNDROME [None]
